FAERS Safety Report 16744180 (Version 1)
Quarter: 2019Q3

REPORT INFORMATION
  Report Type: Spontaneous
  Country: DE (occurrence: DE)
  Receive Date: 20190827
  Receipt Date: 20190827
  Transmission Date: 20191005
  Serious: Yes (Other)
  Sender: FDA-Public Use
  Company Number: DE-ROCHE-2382928

PATIENT
  Age: 56 Year
  Sex: Female

DRUGS (6)
  1. PACLITAXEL. [Concomitant]
     Active Substance: PACLITAXEL
  2. ZOMETA [Concomitant]
     Active Substance: ZOLEDRONIC ACID
     Route: 065
     Dates: start: 201904
  3. EPIRUBICIN [Concomitant]
     Active Substance: EPIRUBICIN
  4. KADCYLA [Suspect]
     Active Substance: ADO-TRASTUZUMAB EMTANSINE
     Indication: BREAST CANCER
     Route: 065
     Dates: start: 201402, end: 201907
  5. CYCLOPHOSPHAMIDE. [Concomitant]
     Active Substance: CYCLOPHOSPHAMIDE
  6. IBANDRONATE [Concomitant]
     Active Substance: IBANDRONATE SODIUM
     Route: 048

REACTIONS (4)
  - Non-cirrhotic portal hypertension [Unknown]
  - Liver injury [Unknown]
  - Confusional state [Recovered/Resolved]
  - Hepatic encephalopathy [Unknown]
